FAERS Safety Report 20257596 (Version 1)
Quarter: 2021Q4

REPORT INFORMATION
  Report Type: Report from Study
  Country: US (occurrence: US)
  Receive Date: 20211230
  Receipt Date: 20211230
  Transmission Date: 20220303
  Serious: Yes (Other)
  Sender: FDA-Public Use
  Company Number: US-PHARMACOVIGILANCE-US-KAD-21-00138

PATIENT
  Sex: Male
  Weight: 82.984 kg

DRUGS (1)
  1. REZUROCK [Suspect]
     Active Substance: BELUMOSUDIL
     Indication: Chronic graft versus host disease
     Dosage: 200 MG, ONE TABLET BY MOUTH DAILY IN THE MORNING WITH FOOD
     Route: 048
     Dates: start: 20211106

REACTIONS (8)
  - Skin cancer [Unknown]
  - Vertigo [Unknown]
  - Illness [Unknown]
  - Bed rest [Unknown]
  - Nasopharyngitis [Unknown]
  - Decreased appetite [Unknown]
  - Dyspnoea [Unknown]
  - Cough [Unknown]
